FAERS Safety Report 9587056 (Version 1)
Quarter: 2013Q4

REPORT INFORMATION
  Report Type: Spontaneous
  Country: US (occurrence: US)
  Receive Date: 20131003
  Receipt Date: 20131003
  Transmission Date: 20140711
  Serious: Yes (Death, Other)
  Sender: FDA-Public Use
  Company Number: US-FRI-1000049345

PATIENT
  Age: 69 Year
  Sex: Male

DRUGS (12)
  1. CEFTAROLINE FOSAMIL [Suspect]
     Indication: STAPHYLOCOCCAL BACTERAEMIA
     Dosage: 400 UNK, EVERY 8 HOURS (D 10-17)
     Route: 042
  2. CEFTAROLINE FOSAMIL [Suspect]
     Indication: ENDOCARDITIS
     Dosage: 400 UNK, EVERY 8 HOURS (D 10-17)
     Route: 042
  3. CEFTAROLINE FOSAMIL [Suspect]
     Indication: OSTEOMYELITIS
     Dosage: 400 UNK, EVERY 8 HOURS (D 10-17)
     Route: 042
  4. CUBICIN [Suspect]
     Indication: STAPHYLOCOCCAL BACTERAEMIA
     Dosage: 6 MG/KG, UNK, (DAYS 3-6)
     Route: 042
  5. CUBICIN [Suspect]
     Indication: ENDOCARDITIS
     Dosage: 6 MG/KG, UNK, (DAYS 3-6)
     Route: 042
  6. CUBICIN [Suspect]
     Indication: OSTEOMYELITIS
     Dosage: 6 MG/KG, UNK, (DAYS 3-6)
     Route: 042
  7. CUBICIN [Suspect]
     Dosage: 10 MG/KG, UNK, (DAYS 7-9)
     Route: 042
  8. CUBICIN [Suspect]
     Dosage: 10 MG/KG, UNK, (DAYS 7-9)
     Route: 042
  9. CUBICIN [Suspect]
     Dosage: 10 MG/KG, UNK, (DAYS 7-9)
     Route: 042
  10. CUBICIN [Suspect]
     Dosage: 10 MG/KG, UNK, (DAYS 10-17)
     Route: 042
  11. CUBICIN [Suspect]
     Dosage: 10 MG/KG, UNK, (DAYS 10-17)
     Route: 042
  12. CUBICIN [Suspect]
     Dosage: 10 MG/KG, UNK, (DAYS 10-17)
     Route: 042

REACTIONS (2)
  - Death [Fatal]
  - Treatment failure [Unknown]
